FAERS Safety Report 24559574 (Version 2)
Quarter: 2024Q4

REPORT INFORMATION
  Report Type: Spontaneous
  Country: US (occurrence: US)
  Receive Date: 20241029
  Receipt Date: 20241122
  Transmission Date: 20250114
  Serious: Yes (Other)
  Sender: SAMSUNG BIOEPIS
  Company Number: US-SAMSUNG BIOEPIS-SB-2024-31663

PATIENT
  Age: 50 Year
  Sex: Female

DRUGS (1)
  1. INFLIXIMAB [Suspect]
     Active Substance: INFLIXIMAB
     Indication: Colitis ulcerative
     Dosage: OVER 10 YEARS;
     Dates: start: 20170911, end: 20230401

REACTIONS (2)
  - Dermatitis psoriasiform [Recovered/Resolved]
  - Impetigo [Recovered/Resolved]

NARRATIVE: CASE EVENT DATE: 20221004
